FAERS Safety Report 6219570-6 (Version None)
Quarter: 2009Q2

REPORT INFORMATION
  Report Type: 
  Country: None (occurrence: None)
  Receive Date: 20090609
  Receipt Date: 20090529
  Transmission Date: 20091009
  Serious: Yes (Other)
  Sender: FDA-Public Use
  Company Number: BR-BAXTER-2009BH009492

PATIENT
  Age: 30 Year
  Sex: Male

DRUGS (4)
  1. PROTHROMPLEX S-TIM4 [Suspect]
     Indication: FACTOR VIII DEFICIENCY
     Route: 065
  2. KRYOBULIN, UNSPECIFIED [Suspect]
     Indication: FACTOR VIII DEFICIENCY
     Route: 065
  3. BEBULIN [Suspect]
     Indication: FACTOR VIII DEFICIENCY
     Route: 065
  4. CRYOSUPERNATE [Suspect]
     Indication: FACTOR VIII DEFICIENCY
     Route: 065

REACTIONS (1)
  - HEPATITIS C [None]
